FAERS Safety Report 17508917 (Version 1)
Quarter: 2020Q1

REPORT INFORMATION
  Report Type: Spontaneous
  Country: TR (occurrence: TR)
  Receive Date: 20200306
  Receipt Date: 20200306
  Transmission Date: 20200409
  Serious: Yes (Other)
  Sender: FDA-Public Use
  Company Number: TR-FERRINGPH-2020FE01463

PATIENT
  Age: 12 Year
  Sex: Female
  Weight: 57 kg

DRUGS (3)
  1. MINIRINMELT [Suspect]
     Active Substance: DESMOPRESSIN ACETATE
     Dosage: 60 UG, 1 TIME DAILY
     Route: 048
     Dates: start: 20191122, end: 20191206
  2. MINIRINMELT [Suspect]
     Active Substance: DESMOPRESSIN ACETATE
     Indication: DIABETES INSIPIDUS
     Dosage: 60 UG, 1 TIME DAILY
     Route: 048
     Dates: start: 20200227
  3. MINIRINMELT [Suspect]
     Active Substance: DESMOPRESSIN ACETATE
     Dosage: 60 UG, 2 TIMES DAILY
     Route: 048
     Dates: start: 20191207, end: 20200226

REACTIONS (1)
  - Tachycardia [Recovered/Resolved]

NARRATIVE: CASE EVENT DATE: 20200220
